FAERS Safety Report 7741160-4 (Version None)
Quarter: 2011Q3

REPORT INFORMATION
  Report Type: 
  Country: None (occurrence: None)
  Receive Date: 20110909
  Receipt Date: 20110902
  Transmission Date: 20111222
  Serious: Yes (Death)
  Sender: FDA-Public Use
  Company Number: JP-ACTELION-A-CH2010-41635

PATIENT
  Sex: Male
  Weight: 54 kg

DRUGS (17)
  1. WARFARIN SODIUM [Concomitant]
  2. ENALAPRIL MALEATE [Concomitant]
  3. ALLOPURINOL [Concomitant]
  4. CARPERITIDE [Suspect]
     Dosage: UNK
     Dates: start: 20100805, end: 20100911
  5. FERROUS SODIUM CITRATE [Concomitant]
  6. TRACLEER [Suspect]
     Dosage: 62.5 MG, BID
     Route: 048
     Dates: start: 20091112, end: 20091116
  7. DOBUTAMINE HCL [Suspect]
     Dosage: UNK
     Dates: start: 20100806, end: 20100911
  8. AMLODIPINE BESYLATE [Concomitant]
  9. DIGOXIN [Concomitant]
  10. VERAPAMIL HCL [Concomitant]
  11. MANIDIPINE HYDROCHLORIDE [Concomitant]
  12. FUROSEMIDE [Suspect]
     Dosage: UNK
     Dates: end: 20100910
  13. OXYGEN [Concomitant]
  14. DOPAMINE HCL [Suspect]
  15. TRACLEER [Suspect]
     Indication: PULMONARY ARTERIAL HYPERTENSION
     Dosage: 125 MG, BID
     Route: 048
     Dates: start: 20091117, end: 20100911
  16. NIFEDIPINE [Concomitant]
  17. BERAPROST SODIUM [Concomitant]

REACTIONS (7)
  - CARDIAC FAILURE CONGESTIVE [None]
  - CONCOMITANT DISEASE AGGRAVATED [None]
  - PNEUMONIA [None]
  - DRUG EFFECT DECREASED [None]
  - RIGHT VENTRICULAR FAILURE [None]
  - MECHANICAL VENTILATION [None]
  - ANURIA [None]
